FAERS Safety Report 10427625 (Version 1)
Quarter: 2014Q3

REPORT INFORMATION
  Report Type: Spontaneous
  Country: JP (occurrence: JP)
  Receive Date: 20140903
  Receipt Date: 20140903
  Transmission Date: 20150326
  Serious: Yes (Other)
  Sender: FDA-Public Use
  Company Number: PHHY2011JP122469

PATIENT
  Age: 80 Year
  Sex: Female

DRUGS (3)
  1. EXJADE [Suspect]
     Active Substance: DEFERASIROX
     Dosage: 625 MG/DAY
  2. EXJADE [Suspect]
     Active Substance: DEFERASIROX
     Dosage: UKN
  3. EXJADE [Suspect]
     Active Substance: DEFERASIROX
     Indication: MYELODYSPLASTIC SYNDROME
     Dosage: 500 MG, DAILY

REACTIONS (1)
  - Pneumonia [Recovered/Resolved]
